FAERS Safety Report 6285591-0 (Version None)
Quarter: 2009Q3

REPORT INFORMATION
  Report Type: 
  Country: None (occurrence: None)
  Receive Date: 20090727
  Receipt Date: 20090716
  Transmission Date: 20100115
  Serious: Yes (Other)
  Sender: FDA-Public Use
  Company Number: US-TYCO HEALTHCARE/MALLINCKRODT-T200701627

PATIENT

DRUGS (34)
  1. OPTIMARK [Suspect]
     Indication: NUCLEAR MAGNETIC RESONANCE IMAGING
     Dosage: 20 ML, SINGLE
     Route: 042
     Dates: start: 20060126, end: 20060126
  2. OPTIMARK [Suspect]
     Indication: NUCLEAR MAGNETIC RESONANCE IMAGING BRAIN
     Dosage: 20 ML, SINGLE
     Route: 042
     Dates: start: 20060918, end: 20060918
  3. OPTIMARK [Suspect]
     Dosage: 20 ML, SINGLE
     Dates: start: 20051202, end: 20051202
  4. MAGNEVIST [Suspect]
     Indication: SCAN
     Dosage: 20 ML, SINGLE
     Dates: start: 20051104, end: 20051104
  5. GADOLINIUM [Suspect]
     Indication: NUCLEAR MAGNETIC RESONANCE IMAGING
     Dosage: UNK, SINGLE
     Route: 042
     Dates: start: 20011102, end: 20011102
  6. GADOLINIUM [Suspect]
     Indication: NUCLEAR MAGNETIC RESONANCE IMAGING BRAIN
     Dosage: UNK, SINGLE
     Route: 042
     Dates: start: 20020121, end: 20020121
  7. GADOLINIUM [Suspect]
     Dosage: UNK, SINGLE
     Route: 042
     Dates: start: 20030728, end: 20030728
  8. GADOLINIUM [Suspect]
     Dosage: 20 ML, SINGLE
     Route: 042
     Dates: start: 20050309, end: 20050309
  9. GADOLINIUM [Suspect]
     Dosage: UNK
     Dates: start: 20050722, end: 20050722
  10. GADOLINIUM [Suspect]
     Dosage: UNK, SINGLE
     Route: 042
     Dates: start: 20051227, end: 20051227
  11. CLONIDINE [Concomitant]
     Indication: HYPERTENSION
     Dosage: 1 MG, BID
  12. METOPROLOL TARTRATE [Concomitant]
     Indication: HYPERTENSION
     Dosage: 100 MG, QD
  13. NIFEDIPINE [Concomitant]
     Indication: HYPERTENSION
     Dosage: 60 MG, QD
  14. LYRICA [Concomitant]
     Indication: FIBROMYALGIA
     Dosage: 75 MG, BID
  15. LYRICA [Concomitant]
     Indication: PAIN
  16. REGULAR INSULIN [Concomitant]
     Indication: DIABETES MELLITUS
     Dosage: UNK, TID
  17. LENTE INSULIN [Concomitant]
     Indication: DIABETES MELLITUS
     Dosage: UNK, QD
  18. XALATAN [Concomitant]
     Indication: EYE DISORDER
     Dosage: UNK, QD
  19. DEXFOL [Concomitant]
     Indication: SUPPLEMENTATION THERAPY
     Dosage: 2 TABS, QD
     Dates: start: 20020601
  20. PREDNISONE TAB [Concomitant]
     Indication: PROPHYLAXIS AGAINST TRANSPLANT REJECTION
     Dosage: 10 MG, QD
     Dates: start: 20071001
  21. TRAZODONE [Concomitant]
     Indication: SLEEP DISORDER
     Dosage: 50 MG, QD
  22. SLOW-MAG                           /00438001/ [Concomitant]
     Indication: MINERAL SUPPLEMENTATION
     Dosage: 4 TABS, QD
  23. VITAMIN A [Concomitant]
     Indication: VITAMIN SUPPLEMENTATION
     Dosage: 800 IU, QD
  24. PROGRAF [Concomitant]
     Indication: PROPHYLAXIS AGAINST TRANSPLANT REJECTION
     Dosage: 3 CAPSULES, QD
  25. PROGRAF [Concomitant]
     Dosage: 4 CAPSULES, QD
  26. MYFORTIC [Concomitant]
     Indication: PROPHYLAXIS AGAINST TRANSPLANT REJECTION
     Dosage: 4 TABS, BID
  27. FOLBEE PLUS [Concomitant]
     Indication: VITAMIN SUPPLEMENTATION
     Dates: start: 20020601
  28. NEPHROCAPS [Concomitant]
     Indication: SUPPLEMENTATION THERAPY
  29. ANTIBIOTICS [Concomitant]
     Indication: INFECTION
  30. DARVOCET                           /00220901/ [Concomitant]
     Indication: ANALGESIA
  31. PERCOCET [Concomitant]
     Indication: ANALGESIA
  32. IRON SULFATETHIAMIN COMPOUND TAB [Concomitant]
     Indication: MINERAL SUPPLEMENTATION
     Dates: start: 20020601, end: 20071001
  33. EPOGEN [Concomitant]
     Indication: DIALYSIS
     Dates: start: 20020601, end: 20071001
  34. EPOGEN [Concomitant]
     Indication: SUPPLEMENTATION THERAPY

REACTIONS (4)
  - DELIRIUM [None]
  - NEPHROGENIC SYSTEMIC FIBROSIS [None]
  - OFF LABEL USE [None]
  - SKIN ULCER [None]
